FAERS Safety Report 6784844-7 (Version None)
Quarter: 2010Q2

REPORT INFORMATION
  Report Type: 
  Country: None (occurrence: None)
  Receive Date: 20100622
  Receipt Date: 20090817
  Transmission Date: 20101027
  Serious: Yes (Death)
  Sender: FDA-Public Use
  Company Number: JP-GENZYME-THYM-1001106

PATIENT
  Sex: Female
  Weight: 40 kg

DRUGS (10)
  1. THYMOGLOBULIN [Suspect]
     Indication: APLASTIC ANAEMIA
     Dosage: 2.5 MG/KG, QD
     Route: 042
     Dates: start: 20090629, end: 20090703
  2. METHYLPREDNISOLONE [Concomitant]
     Indication: ANAPHYLAXIS PROPHYLAXIS
     Dosage: 125 MG, QD
     Dates: start: 20090629, end: 20090703
  3. CYCLOSPORINE [Concomitant]
     Indication: APLASTIC ANAEMIA
     Dosage: 100 MG, BID
     Route: 048
     Dates: start: 20090430, end: 20090709
  4. NEUPOGEN [Concomitant]
     Indication: APLASTIC ANAEMIA
     Dosage: 600 MCG, QD
     Dates: start: 20090501, end: 20090709
  5. VANCOMYCIN HYDROCHLORIDE [Concomitant]
     Indication: ANTI-INFECTIVE THERAPY
     Dosage: 0.25 G, BID
     Dates: start: 20090611, end: 20090709
  6. PRIMAXIN [Concomitant]
     Indication: ANTI-INFECTIVE THERAPY
     Dosage: 500 MG, BID
     Dates: start: 20090526, end: 20090707
  7. CILASTATIN [Concomitant]
     Indication: ANTI-INFECTIVE THERAPY
     Dosage: 500 MG, BID
     Dates: start: 20090526, end: 20090707
  8. VORICONAZOLE [Concomitant]
     Indication: ANTI-INFECTIVE THERAPY
     Dosage: 200 MG, BID
     Route: 048
     Dates: start: 20090629, end: 20090709
  9. ACYCLOVIR [Concomitant]
     Indication: HERPES ZOSTER
     Dosage: 500 MG, QD
     Route: 048
     Dates: start: 20090522, end: 20090709
  10. RANITIDINE HYDROCHLORIDE [Concomitant]
     Indication: PROPHYLAXIS AGAINST GASTROINTESTINAL ULCER
     Dosage: 100 MG, QD
     Dates: start: 20090529, end: 20090709

REACTIONS (3)
  - LYMPHOPENIA [None]
  - PNEUMONIA [None]
  - WHITE BLOOD CELL COUNT DECREASED [None]
